FAERS Safety Report 6781071-4 (Version None)
Quarter: 2010Q2

REPORT INFORMATION
  Report Type: 
  Country: None (occurrence: None)
  Receive Date: 20100617
  Receipt Date: 20100617
  Transmission Date: 20101027
  Serious: No
  Sender: FDA-Public Use
  Company Number: None

PATIENT
  Age: 39 Year
  Sex: Female
  Weight: 43 kg

DRUGS (1)
  1. LBH589 [Suspect]
     Indication: THYROID CANCER
     Dosage: MWF IN A 21 DAY CYCLE
     Dates: start: 20100426, end: 20100614

REACTIONS (3)
  - BACTERIAL TEST POSITIVE [None]
  - NEUTROPHIL COUNT DECREASED [None]
  - PLATELET COUNT DECREASED [None]
